FAERS Safety Report 26148597 (Version 2)
Quarter: 2025Q4

REPORT INFORMATION
  Report Type: Spontaneous
  Country: US (occurrence: US)
  Receive Date: 20251212
  Receipt Date: 20251225
  Transmission Date: 20260117
  Serious: No
  Sender: BAUSCH AND LOMB
  Company Number: US-BAUSCHBL-2025BNL033239

PATIENT
  Age: 73 Year
  Sex: Female

DRUGS (2)
  1. LATANOPROST [Suspect]
     Active Substance: LATANOPROST
     Indication: Glaucoma
     Route: 047
  2. BRIMONIDINE TARTRATE [Suspect]
     Active Substance: BRIMONIDINE TARTRATE
     Indication: Product used for unknown indication
     Route: 047

REACTIONS (6)
  - Limb injury [Unknown]
  - Pain in extremity [Unknown]
  - Product packaging difficult to open [Unknown]
  - Wrong technique in product usage process [Unknown]
  - Product package associated injury [Unknown]
  - Product container issue [Unknown]
